FAERS Safety Report 6631477-9 (Version None)
Quarter: 2010Q1

REPORT INFORMATION
  Report Type: 
  Country: None (occurrence: None)
  Receive Date: 20100311
  Receipt Date: 20100311
  Transmission Date: 20100710
  Serious: Yes (Hospitalization)
  Sender: FDA-Public Use
  Company Number: None

PATIENT
  Age: 56 Year
  Sex: Female
  Weight: 68.0396 kg

DRUGS (1)
  1. LOVASTATIN [Suspect]
     Indication: LOW DENSITY LIPOPROTEIN
     Dosage: 20 MG DAILY PO
     Route: 048
     Dates: start: 20091015, end: 20100115

REACTIONS (12)
  - ASTHENIA [None]
  - DIZZINESS [None]
  - DRY EYE [None]
  - DYSURIA [None]
  - EYE PAIN [None]
  - HEADACHE [None]
  - MYALGIA [None]
  - NAUSEA [None]
  - NECK PAIN [None]
  - NO THERAPEUTIC RESPONSE [None]
  - OCULAR HYPERAEMIA [None]
  - VISION BLURRED [None]
